FAERS Safety Report 19619078 (Version 1)
Quarter: 2021Q3

REPORT INFORMATION
  Report Type: Spontaneous
  Country: US (occurrence: US)
  Receive Date: 20210728
  Receipt Date: 20210728
  Transmission Date: 20211014
  Serious: No
  Sender: FDA-Public Use
  Company Number: US-ROCHE-2700784

PATIENT
  Sex: Male

DRUGS (4)
  1. BENADRYL [Concomitant]
     Active Substance: DIPHENHYDRAMINE HYDROCHLORIDE
  2. TUKYSA [Suspect]
     Active Substance: TUCATINIB
     Indication: BREAST CANCER MALE
     Route: 065
  3. XELODA [Suspect]
     Active Substance: CAPECITABINE
     Indication: PRODUCT USED FOR UNKNOWN INDICATION
     Route: 048
  4. TUKYSA [Suspect]
     Active Substance: TUCATINIB
     Route: 065

REACTIONS (16)
  - Neoplasm [Unknown]
  - Gait disturbance [Unknown]
  - Muscular weakness [Unknown]
  - Palmar-plantar erythrodysaesthesia syndrome [Unknown]
  - Erythema [Unknown]
  - Rash macular [Unknown]
  - Diarrhoea [Unknown]
  - Ill-defined disorder [Unknown]
  - Pruritus [Unknown]
  - Skin discolouration [Unknown]
  - Movement disorder [Unknown]
  - Dehydration [Unknown]
  - Lymphoedema [Unknown]
  - Skin exfoliation [Unknown]
  - Hypotension [Unknown]
  - Pain in extremity [Unknown]
